FAERS Safety Report 7699085-9 (Version None)
Quarter: 2011Q3

REPORT INFORMATION
  Report Type: 
  Country: None (occurrence: None)
  Receive Date: 20110819
  Receipt Date: 20110815
  Transmission Date: 20111222
  Serious: Yes (Hospitalization, Other)
  Sender: FDA-Public Use
  Company Number: US-ABBOTT-11P-163-0847256-00

PATIENT
  Age: 54 Year
  Sex: Male

DRUGS (9)
  1. RAMIPRIL [Concomitant]
     Indication: BLOOD PRESSURE
  2. MAGNESIUM [Concomitant]
     Indication: PRODUCT USED FOR UNKNOWN INDICATION
     Dosage: 3 TABLETS IN MORNING AND EVENING
  3. MILK THISTLE [Concomitant]
     Indication: SUPPLEMENTATION THERAPY
     Route: 048
  4. HUMIRA [Suspect]
     Indication: PSORIATIC ARTHROPATHY
     Dates: start: 20090106
  5. ASPIRIN [Concomitant]
     Indication: PRODUCT USED FOR UNKNOWN INDICATION
  6. VITAMIN TAB [Concomitant]
     Indication: VITAMIN SUPPLEMENTATION
     Route: 048
  7. VITAMIN D [Concomitant]
     Indication: SUPPLEMENTATION THERAPY
     Dosage: 2 EVERY MORNING AND EVENING
     Route: 048
  8. NUBAIN [Suspect]
     Indication: PAIN
     Dates: start: 20100501, end: 20100501
  9. CO Q-10 [Concomitant]
     Indication: SUPPLEMENTATION THERAPY
     Route: 048

REACTIONS (8)
  - CHEST PAIN [None]
  - VENOUS ANEURYSM [None]
  - FATIGUE [None]
  - CORONARY ARTERY OCCLUSION [None]
  - LOSS OF CONSCIOUSNESS [None]
  - PAIN [None]
  - HYPERSENSITIVITY [None]
  - INJECTION SITE NODULE [None]
